FAERS Safety Report 20884864 (Version 1)
Quarter: 2022Q2

REPORT INFORMATION
  Report Type: Spontaneous
  Country: GB (occurrence: None)
  Receive Date: 20220527
  Receipt Date: 20220527
  Transmission Date: 20220721
  Serious: Yes (Death)
  Sender: FDA-Public Use
  Company Number: GB-Merck Healthcare KGaA-9324476

PATIENT
  Age: 62 Year
  Sex: Female

DRUGS (2)
  1. AVELUMAB [Suspect]
     Active Substance: AVELUMAB
     Indication: Clear cell renal cell carcinoma
     Dates: start: 20210309
  2. AXITINIB [Suspect]
     Active Substance: AXITINIB
     Indication: Clear cell renal cell carcinoma
     Dates: start: 20210309

REACTIONS (1)
  - Death [Fatal]
